FAERS Safety Report 11846109 (Version 1)
Quarter: 2015Q4

REPORT INFORMATION
  Report Type: Spontaneous
  Country: US (occurrence: US)
  Receive Date: 20151217
  Receipt Date: 20151217
  Transmission Date: 20160305
  Serious: No
  Sender: FDA-Public Use
  Company Number: US-HORIZON-ACT-0221-2015

PATIENT
  Age: 25 Year
  Sex: Male

DRUGS (1)
  1. ACTIMMUNE [Suspect]
     Active Substance: INTERFERON GAMMA-1B
     Indication: CHRONIC GRANULOMATOUS DISEASE
     Dosage: 35 ?G TIW
     Route: 058
     Dates: start: 201412

REACTIONS (1)
  - Chills [Unknown]

NARRATIVE: CASE EVENT DATE: 201512
